FAERS Safety Report 5028555-7 (Version None)
Quarter: 2006Q2

REPORT INFORMATION
  Report Type: 
  Country: None (occurrence: None)
  Receive Date: 20060615
  Receipt Date: 20060615
  Transmission Date: 20061013
  Serious: Yes (Other)
  Sender: FDA-Public Use
  Company Number: None

PATIENT
  Age: 42 Year
  Sex: Male

DRUGS (1)
  1. CIPRO [Suspect]
     Dosage: ONE TIME
     Dates: start: 20060530

REACTIONS (2)
  - INFUSION SITE PAIN [None]
  - INFUSION SITE PRURITUS [None]
